FAERS Safety Report 8414040-9 (Version None)
Quarter: 2012Q2

REPORT INFORMATION
  Report Type: 
  Country: None (occurrence: None)
  Receive Date: 20120323
  Receipt Date: 20110603
  Transmission Date: 20120825
  Serious: Yes (Other)
  Sender: FDA-Public Use
  Company Number: 163-21880-11060689

PATIENT

DRUGS (2)
  1. REVLIMID [Suspect]
     Indication: PANCREATIC CARCINOMA
     Dosage: 25 MG, ON DAYS 1-21, PO
     Route: 048
  2. GEMCITABINE (GEMCITABINE)  [V.14.1] [Concomitant]

REACTIONS (8)
  - EMBOLISM VENOUS [None]
  - THROMBOCYTOPENIA [None]
  - DECREASED APPETITE [None]
  - FATIGUE [None]
  - NEUTROPENIA [None]
  - CONSTIPATION [None]
  - NAUSEA [None]
  - RASH [None]
